FAERS Safety Report 6004572-5 (Version None)
Quarter: 2008Q4

REPORT INFORMATION
  Report Type: 
  Country: None (occurrence: None)
  Receive Date: 20081216
  Receipt Date: 20071112
  Transmission Date: 20090506
  Serious: No
  Sender: FDA-Public Use
  Company Number: US-BRISTOL-MYERS SQUIBB COMPANY-13979844

PATIENT
  Age: 79 Year
  Sex: Female

DRUGS (2)
  1. PRAVASTATIN SODIUM [Suspect]
     Dates: start: 20071028
  2. GLEEVEC [Concomitant]
     Indication: CHRONIC MYELOID LEUKAEMIA
     Dates: start: 20060101

REACTIONS (1)
  - DIARRHOEA [None]
